FAERS Safety Report 8240198-0 (Version None)
Quarter: 2012Q1

REPORT INFORMATION
  Report Type: 
  Country: None (occurrence: None)
  Receive Date: 20120328
  Receipt Date: 20120319
  Transmission Date: 20120608
  Serious: Yes (Hospitalization)
  Sender: FDA-Public Use
  Company Number: FR-SANOFI-AVENTIS-200818180GDDC

PATIENT
  Age: 78 Year
  Sex: Male
  Weight: 84.5 kg

DRUGS (15)
  1. DOCETAXEL [Suspect]
     Dosage: DOSE UNIT: 75 MG/M**2
     Route: 042
     Dates: start: 20080707, end: 20080707
  2. PREDNISONE TAB [Suspect]
     Route: 048
     Dates: start: 20080519, end: 20080707
  3. CORDARONE [Concomitant]
     Dosage: DOSE AS USED: UNK
     Dates: start: 20070801
  4. PLAVIX [Concomitant]
     Dates: start: 20070801, end: 20080612
  5. XALATAN [Concomitant]
  6. AFLIBERCEPT [Suspect]
     Dosage: DOSE UNIT: 6 MG/KG
     Route: 042
     Dates: start: 20080519, end: 20080519
  7. ACETYLSALICYLIC ACID/PRAVASTATIN SODIUM [Concomitant]
  8. TRANDOLAPRIL [Concomitant]
  9. IMOVANE [Concomitant]
     Dosage: DOSE AS USED: UNK
  10. DOCETAXEL [Suspect]
     Dosage: DOSE UNIT: 75 MG/M**2
     Route: 042
     Dates: start: 20080519, end: 20080519
  11. AFLIBERCEPT [Suspect]
     Dosage: DOSE UNIT: 6 MG/KG
     Route: 042
     Dates: start: 20080707, end: 20080707
  12. ZOLADEX [Concomitant]
     Indication: HORMONE REPLACEMENT THERAPY
     Dates: start: 20051101
  13. LASIX [Concomitant]
     Dosage: DOSE AS USED: UNK
  14. DOXAZOSIN MESYLATE [Concomitant]
  15. FERROUS SULFATE TAB [Concomitant]
     Dates: start: 20080616

REACTIONS (1)
  - ANAL FISTULA [None]
